FAERS Safety Report 6779935-0 (Version None)
Quarter: 2010Q2

REPORT INFORMATION
  Report Type: 
  Country: None (occurrence: None)
  Receive Date: 20100618
  Receipt Date: 20100607
  Transmission Date: 20101027
  Serious: Yes (Other)
  Sender: FDA-Public Use
  Company Number: BR-PFIZER INC-2010033530

PATIENT
  Age: 50 Year
  Sex: Male
  Weight: 65 kg

DRUGS (3)
  1. CHAMPIX [Suspect]
     Indication: TOBACCO USER
     Dosage: 1 MG, EVERY 12 HOURS
     Route: 048
     Dates: start: 20100305
  2. NOVO-PETRIN [Concomitant]
     Indication: PAIN IN EXTREMITY
     Dosage: UNK
     Dates: start: 20000101
  3. OMEPRAZOLE [Concomitant]
     Dosage: UNK

REACTIONS (1)
  - MUSCULAR WEAKNESS [None]
